FAERS Safety Report 8950093 (Version 1)
Quarter: 2012Q4

REPORT INFORMATION
  Report Type: 
  Country: US (occurrence: US)
  Receive Date: 20121205
  Receipt Date: 20121205
  Transmission Date: 20130627
  Serious: No
  Sender: FDA-Public Use
  Company Number: US-ASTELLAS-2012US005475

PATIENT
  Sex: Female

DRUGS (4)
  1. TARCEVA [Suspect]
     Indication: NON-SMALL CELL LUNG CANCER STAGE IV
     Dosage: 150 mg, UID/QD
     Route: 048
  2. TARCEVA [Suspect]
     Dosage: 117 mg, UID/QD
     Route: 048
  3. TARCEVA [Suspect]
     Dosage: 100 mg, UID/QD
     Route: 048
  4. PROTONIX [Suspect]
     Indication: GASTROOESOPHAGEAL REFLUX DISEASE
     Dosage: UNK
     Route: 065

REACTIONS (4)
  - Gastrooesophageal reflux disease [Unknown]
  - Malaise [Unknown]
  - Faeces discoloured [Unknown]
  - Vomiting [Unknown]
